FAERS Safety Report 5563680-3 (Version None)
Quarter: 2007Q4

REPORT INFORMATION
  Report Type: 
  Country: None (occurrence: None)
  Receive Date: 20071217
  Receipt Date: 20070904
  Transmission Date: 20080405
  Serious: No
  Sender: FDA-Public Use
  Company Number: US-ASTRAZENECA-2007UW18440

PATIENT
  Age: 52 Year
  Sex: Female
  Weight: 97.1 kg

DRUGS (3)
  1. CRESTOR [Suspect]
     Indication: BLOOD CHOLESTEROL INCREASED
     Route: 048
     Dates: start: 20070724
  2. ACIPHEX [Concomitant]
  3. CALCIUM [Concomitant]

REACTIONS (4)
  - COUGH [None]
  - DYSPEPSIA [None]
  - DYSPHONIA [None]
  - POSTNASAL DRIP [None]
